FAERS Safety Report 7425906-0 (Version None)
Quarter: 2011Q2

REPORT INFORMATION
  Report Type: 
  Country: None (occurrence: None)
  Receive Date: 20110418
  Receipt Date: 20110418
  Transmission Date: 20111010
  Serious: No
  Sender: FDA-Public Use
  Company Number: None

PATIENT
  Sex: Female
  Weight: 60.9 kg

DRUGS (1)
  1. LITHIUM CARBONATE [Suspect]
     Indication: BIPOLAR DISORDER
     Dosage: 300 MG 3/DAY FOR 20+ YEARS
     Dates: start: 19870101, end: 20101001

REACTIONS (7)
  - SPEECH DISORDER [None]
  - MEMORY IMPAIRMENT [None]
  - VOMITING [None]
  - FAECAL INCONTINENCE [None]
  - GAIT DISTURBANCE [None]
  - NAUSEA [None]
  - FALL [None]
